FAERS Safety Report 8250668-7 (Version None)
Quarter: 2012Q2

REPORT INFORMATION
  Report Type: 
  Country: None (occurrence: None)
  Receive Date: 20120402
  Receipt Date: 20120325
  Transmission Date: 20120825
  Serious: Yes (Other)
  Sender: FDA-Public Use
  Company Number: AU-ROCHE-1035307

PATIENT

DRUGS (1)
  1. LUCENTIS [Suspect]
     Indication: INTRAOCULAR PRESSURE INCREASED
     Route: 050

REACTIONS (2)
  - OPEN ANGLE GLAUCOMA [None]
  - OCULAR HYPERTENSION [None]
